FAERS Safety Report 13232185 (Version 2)
Quarter: 2017Q4

REPORT INFORMATION
  Report Type: Other
  Country: US (occurrence: US)
  Receive Date: 20170214
  Receipt Date: 20171211
  Transmission Date: 20180320
  Serious: Yes (Life-Threatening, Hospitalization)
  Sender: FDA-Public Use
  Company Number: US-ALSI-201700050

PATIENT
  Sex: Female

DRUGS (1)
  1. NITROGEN. [Suspect]
     Active Substance: NITROGEN
     Indication: ACCIDENTAL EXPOSURE TO PRODUCT
     Dates: start: 20170205, end: 20170205

REACTIONS (6)
  - Frostbite [Recovering/Resolving]
  - Product leakage [Not Recovered/Not Resolved]
  - Unresponsive to stimuli [Not Recovered/Not Resolved]
  - Mental status changes [Recovering/Resolving]
  - Accidental exposure to product [Not Recovered/Not Resolved]
  - Dyspnoea [Recovering/Resolving]

NARRATIVE: CASE EVENT DATE: 20170205
